FAERS Safety Report 9381491 (Version 1)
Quarter: 2013Q3

REPORT INFORMATION
  Report Type: Spontaneous
  Country: DE (occurrence: DE)
  Receive Date: 20130703
  Receipt Date: 20130703
  Transmission Date: 20140515
  Serious: Yes (Other)
  Sender: FDA-Public Use
  Company Number: DE-ROXANE LABORATORIES, INC.-2013-RO-01088RO

PATIENT
  Age: 73 Year
  Sex: Male

DRUGS (1)
  1. LEVETIRACETAM [Suspect]
     Indication: PARTIAL SEIZURES
     Dosage: 1000 MG

REACTIONS (3)
  - Fatigue [Recovered/Resolved]
  - Stupor [Recovered/Resolved]
  - Foot fracture [Unknown]
